FAERS Safety Report 7304498-0 (Version None)
Quarter: 2011Q1

REPORT INFORMATION
  Report Type: 
  Country: None (occurrence: None)
  Receive Date: 20110221
  Receipt Date: 20110217
  Transmission Date: 20110831
  Serious: Yes (Death, Hospitalization)
  Sender: FDA-Public Use
  Company Number: GB-SANOFI-AVENTIS-2011SA010588

PATIENT
  Sex: Male

DRUGS (4)
  1. OXALIPLATIN [Suspect]
     Route: 041
  2. XELODA [Suspect]
     Route: 048
  3. XELODA [Suspect]
     Indication: COLORECTAL CANCER
     Route: 048
  4. OXALIPLATIN [Suspect]
     Indication: COLORECTAL CANCER
     Route: 041

REACTIONS (1)
  - DIARRHOEA [None]
